FAERS Safety Report 7597947-4 (Version None)
Quarter: 2011Q3

REPORT INFORMATION
  Report Type: 
  Country: None (occurrence: None)
  Receive Date: 20110708
  Receipt Date: 20110623
  Transmission Date: 20111222
  Serious: Yes (Other)
  Sender: FDA-Public Use
  Company Number: FR-GENENTECH-319093

PATIENT
  Sex: Female
  Weight: 58 kg

DRUGS (1)
  1. LUCENTIS [Suspect]
     Indication: AGE-RELATED MACULAR DEGENERATION
     Dosage: 1 DF, 1/MONTH
     Route: 031

REACTIONS (1)
  - HYPERTENSIVE CRISIS [None]
